FAERS Safety Report 17388488 (Version 1)
Quarter: 2020Q1

REPORT INFORMATION
  Report Type: Spontaneous
  Country: US (occurrence: US)
  Receive Date: 20200207
  Receipt Date: 20200207
  Transmission Date: 20200409
  Serious: Yes (Other)
  Sender: FDA-Public Use
  Company Number: US-009507513-2001USA011535

PATIENT
  Age: 86 Year
  Sex: Male

DRUGS (2)
  1. INVANZ [Suspect]
     Active Substance: ERTAPENEM SODIUM
     Indication: ESCHERICHIA BACTERAEMIA
  2. INVANZ [Suspect]
     Active Substance: ERTAPENEM SODIUM
     Indication: CYSTITIS
     Dosage: ONCE DAILY FOR 10 DAYS
     Route: 042
     Dates: start: 20200111, end: 20200120

REACTIONS (1)
  - Delirium [Recovered/Resolved]

NARRATIVE: CASE EVENT DATE: 20200116
